FAERS Safety Report 4942694-8 (Version None)
Quarter: 2006Q1

REPORT INFORMATION
  Report Type: 
  Country: None (occurrence: None)
  Receive Date: 20060309
  Receipt Date: 20060224
  Transmission Date: 20060701
  Serious: Yes (Death)
  Sender: FDA-Public Use
  Company Number: GXKR2006IN01175

PATIENT
  Age: 63 Year
  Sex: Male

DRUGS (3)
  1. PREDNISOLONE [Suspect]
     Indication: NON-HODGKIN'S LYMPHOMA
     Dosage: ORAL
     Route: 048
  2. VINCRISTINE [Suspect]
     Indication: NON-HODGKIN'S LYMPHOMA
     Dosage: INTRAVENOUS
     Route: 042
  3. ADRIAMYCIN PFS [Suspect]
     Indication: NON-HODGKIN'S LYMPHOMA
     Dosage: INTRAVENOUS
     Route: 042

REACTIONS (10)
  - ABDOMINAL DISTENSION [None]
  - BRONCHOPNEUMONIA [None]
  - DISORIENTATION [None]
  - HYPOTENSION [None]
  - IMMUNE SYSTEM DISORDER [None]
  - PURPURA [None]
  - RASH MACULAR [None]
  - RESPIRATORY FAILURE [None]
  - SOMNOLENCE [None]
  - STRONGYLOIDIASIS [None]
